FAERS Safety Report 9456430 (Version 1)
Quarter: 2013Q3

REPORT INFORMATION
  Report Type: Spontaneous
  Country: US (occurrence: US)
  Receive Date: 20130813
  Receipt Date: 20130813
  Transmission Date: 20140515
  Serious: Yes (Hospitalization)
  Sender: FDA-Public Use
  Company Number: US-INCYTE CORPORATION-2013IN001770

PATIENT
  Sex: Male
  Weight: 73.02 kg

DRUGS (6)
  1. JAKAFI [Suspect]
     Indication: MYELOFIBROSIS
     Dosage: 15 MG, QD
     Route: 048
     Dates: start: 20120806
  2. JAKAFI [Suspect]
     Dosage: 15 MG, BID
     Route: 048
     Dates: end: 20130724
  3. FUROSEMIDE [Concomitant]
     Dosage: 40 MG, UNK
  4. CARDURA [Concomitant]
     Dosage: 4 MG, UNK
  5. NORVASC [Concomitant]
     Dosage: 5 MG, UNK
  6. ASPIRIN [Concomitant]
     Dosage: 81 MG, UNK

REACTIONS (1)
  - Adverse drug reaction [Unknown]
